FAERS Safety Report 4731769-4 (Version None)
Quarter: 2005Q3

REPORT INFORMATION
  Report Type: 
  Country: None (occurrence: None)
  Receive Date: 20050802
  Receipt Date: 20050802
  Transmission Date: 20060218
  Serious: No
  Sender: FDA-Public Use
  Company Number: None

PATIENT
  Age: 18 Year
  Sex: Female

DRUGS (2)
  1. LEVAQUIN [Suspect]
     Indication: ENCEPHALOPATHY
     Dosage: 500 MG IV QD
     Route: 042
     Dates: start: 20050731
  2. LEVAQUIN [Suspect]
     Indication: LYME DISEASE
     Dosage: 500 MG IV QD
     Route: 042
     Dates: start: 20050731

REACTIONS (5)
  - CHILLS [None]
  - NASOPHARYNGITIS [None]
  - NAUSEA [None]
  - PRURITUS [None]
  - VOMITING [None]
